FAERS Safety Report 8067783-3 (Version None)
Quarter: 2012Q1

REPORT INFORMATION
  Report Type: 
  Country: None (occurrence: None)
  Receive Date: 20120124
  Receipt Date: 20120118
  Transmission Date: 20120608
  Serious: Yes (Hospitalization)
  Sender: FDA-Public Use
  Company Number: FR-PFIZER INC-2011112879

PATIENT
  Age: 78 Year
  Sex: Male

DRUGS (10)
  1. TRAVATAN [Concomitant]
     Dosage: UNK
  2. CORDARONE [Suspect]
     Dosage: 200 MG, ALTERNATE DAY
     Route: 048
     Dates: start: 20110321
  3. NEXIUM [Suspect]
     Dosage: 40 MG, 1X/DAY
     Route: 048
     Dates: end: 20110406
  4. AVODART [Suspect]
     Dosage: UNK DAILY
     Route: 048
  5. NOOTROPYL [Suspect]
     Dosage: 800 MG, 3X/DAY
     Route: 048
     Dates: end: 20110324
  6. POTASSIUM CHLORIDE [Suspect]
     Dosage: 600 MG, 1X/DAY
     Route: 048
  7. CORDARONE [Suspect]
     Dosage: 200 MG, UNK
     Route: 048
     Dates: end: 20110321
  8. RAMIPRIL [Suspect]
     Dosage: 1.25 MG, 2X/DAY
     Route: 048
  9. VASTAREL [Suspect]
     Dosage: 35 MG, 2X/DAY
     Route: 048
     Dates: end: 20110406
  10. LASIX [Suspect]
     Dosage: 20 MG, 2X/DAY
     Route: 048

REACTIONS (3)
  - HYPOTHYROIDISM [None]
  - HALLUCINATION, VISUAL [None]
  - AGGRESSION [None]
